FAERS Safety Report 25147120 (Version 1)
Quarter: 2025Q2

REPORT INFORMATION
  Report Type: Spontaneous
  Country: HU (occurrence: HU)
  Receive Date: 20250401
  Receipt Date: 20250401
  Transmission Date: 20250716
  Serious: Yes (Other)
  Sender: NOVARTIS
  Company Number: HU-002147023-NVSC2025HU016897

PATIENT
  Age: 33 Day
  Sex: Female
  Weight: 3 kg

DRUGS (11)
  1. ZOLGENSMA [Suspect]
     Active Substance: ONASEMNOGENE ABEPARVOVEC-XIOI
     Indication: Spinal muscular atrophy
     Route: 042
     Dates: start: 20241128, end: 20241128
  2. ZOLGENSMA [Suspect]
     Active Substance: ONASEMNOGENE ABEPARVOVEC-XIOI
     Route: 042
     Dates: start: 20241128, end: 20241128
  3. SODIUM CHLORIDE [Concomitant]
     Active Substance: SODIUM CHLORIDE
     Indication: Dehydration
     Route: 042
     Dates: start: 20241128, end: 20241128
  4. PREDNISOLONE [Concomitant]
     Active Substance: PREDNISOLONE
     Indication: Prophylaxis
     Dosage: 4.5 MG, QD
     Route: 054
     Dates: start: 20241127, end: 20241223
  5. PREDNISOLONE [Concomitant]
     Active Substance: PREDNISOLONE
     Indication: Steroid withdrawal syndrome
     Dosage: 4 MG, QD
     Route: 054
     Dates: start: 20241224, end: 20250101
  6. PREDNISOLONE [Concomitant]
     Active Substance: PREDNISOLONE
     Dosage: 3 MG, QD
     Route: 054
     Dates: start: 20250102, end: 20250107
  7. PREDNISOLONE [Concomitant]
     Active Substance: PREDNISOLONE
     Dosage: UNK UNK, QD(1,5 MG)
     Route: 054
     Dates: start: 20250108, end: 20250114
  8. PREDNISOLONE [Concomitant]
     Active Substance: PREDNISOLONE
     Dosage: UNK UNK, QD(0,7  MG)
     Route: 054
     Dates: start: 20250115, end: 20250122
  9. FAMOTIDINE [Concomitant]
     Active Substance: FAMOTIDINE
     Indication: Prophylaxis
     Route: 048
     Dates: start: 20241127, end: 20250122
  10. VITAMIN D [Concomitant]
     Active Substance: VITAMIN D NOS
     Indication: Bone development abnormal
     Dosage: 2 DRP, QD
     Route: 048
     Dates: start: 20241110
  11. DIMETHICONE [Concomitant]
     Active Substance: DIMETHICONE
     Indication: Product used for unknown indication
     Route: 048
     Dates: start: 20241204

REACTIONS (7)
  - Hypercalciuria [Recovering/Resolving]
  - Urine calcium/creatinine ratio [Recovering/Resolving]
  - Pyrexia [Recovered/Resolved]
  - Decreased appetite [Recovered/Resolved]
  - Somnolence [Recovered/Resolved]
  - Vomiting [Recovered/Resolved]
  - Abdominal distension [Recovered/Resolved]

NARRATIVE: CASE EVENT DATE: 20241101
